FAERS Safety Report 21114274 (Version 1)
Quarter: 2022Q3

REPORT INFORMATION
  Report Type: Spontaneous
  Country: US (occurrence: US)
  Receive Date: 20220721
  Receipt Date: 20220721
  Transmission Date: 20221027
  Serious: No
  Sender: FDA-Public Use
  Company Number: US-BAUSCH-BL-2022-018218

PATIENT
  Age: 88 Year
  Sex: Female
  Weight: 73.548 kg

DRUGS (3)
  1. LUMIFY [Suspect]
     Active Substance: BRIMONIDINE TARTRATE
     Indication: Erythema
     Route: 047
  2. LUMIFY [Suspect]
     Active Substance: BRIMONIDINE TARTRATE
  3. OCUVITE [Concomitant]
     Active Substance: VITAMINS
     Indication: Product used for unknown indication
     Dosage: MINIGELS
     Route: 065

REACTIONS (2)
  - Instillation site dryness [Recovering/Resolving]
  - Instillation site pain [Recovering/Resolving]

NARRATIVE: CASE EVENT DATE: 20220101
